FAERS Safety Report 8548352 (Version 2)
Quarter: 2012Q4

REPORT INFORMATION
  Report Type: 
  Country: US (occurrence: US)
  Receive Date: 20120507
  Receipt Date: 20121130
  Transmission Date: 20130627
  Serious: Yes (Life-Threatening, Disabling, Other)
  Sender: FDA-Public Use
  Company Number: US-US-EMD SERONO, INC.-7130143

PATIENT
  Age: 12 Year
  Sex: Male
  Weight: 34 kg

DRUGS (2)
  1. SAIZEN [(SOMATROPIN (RDNA ORIGIN) FOR INJECTION)] [Suspect]
     Indication: DWARFISM
     Dates: start: 200806, end: 201102
  2. SAIZEN [(SOMATROPIN (RDNA ORIGIN) FOR INJECTION)] [Suspect]
     Dates: start: 201108

REACTIONS (10)
  - Influenza [Recovered/Resolved]
  - Pneumonia staphylococcal [Recovering/Resolving]
  - Pneumonia [Recovering/Resolving]
  - Mycoplasma infection [Recovered/Resolved]
  - Bronchiectasis [Unknown]
  - Deafness [Not Recovered/Not Resolved]
  - Platelet count increased [Unknown]
  - Vitamin D deficiency [Unknown]
  - Gastrooesophageal reflux disease [Unknown]
  - Conjunctivitis [Unknown]
